FAERS Safety Report 6501817-X (Version None)
Quarter: 2009Q4

REPORT INFORMATION
  Report Type: 
  Country: None (occurrence: None)
  Receive Date: 20091216
  Receipt Date: 20091211
  Transmission Date: 20100525
  Serious: Yes (Other)
  Sender: FDA-Public Use
  Company Number: CHPA2009US23458

PATIENT
  Age: 44 Year
  Sex: Female
  Weight: 80.726 kg

DRUGS (1)
  1. SLOW FE BROWN (NCH) [Suspect]
     Dosage: UNK, UNK
     Route: 048
     Dates: start: 20091101

REACTIONS (6)
  - ABDOMINAL PAIN UPPER [None]
  - ASTHENIA [None]
  - DECREASED APPETITE [None]
  - DIZZINESS [None]
  - NAUSEA [None]
  - WEIGHT DECREASED [None]
